FAERS Safety Report 4915270-0 (Version None)
Quarter: 2006Q1

REPORT INFORMATION
  Report Type: 
  Country: None (occurrence: None)
  Receive Date: 20060216
  Receipt Date: 20060216
  Transmission Date: 20060701
  Serious: Yes (Hospitalization)
  Sender: FDA-Public Use
  Company Number: None

PATIENT
  Sex: Male
  Weight: 74.8435 kg

DRUGS (2)
  1. INDOCIN SR [Suspect]
     Indication: GOUT
     Dosage: 75 MG PO BID PRIOR TO ADMISSION
     Route: 048
  2. NAPROXEN [Concomitant]

REACTIONS (3)
  - BURNING SENSATION [None]
  - RASH [None]
  - RESPIRATORY DISTRESS [None]
